FAERS Safety Report 5797045-6 (Version None)
Quarter: 2008Q3

REPORT INFORMATION
  Report Type: 
  Country: None (occurrence: None)
  Receive Date: 20080701
  Receipt Date: 20080624
  Transmission Date: 20090109
  Serious: Yes (Death)
  Sender: FDA-Public Use
  Company Number: TR-ELI_LILLY_AND_COMPANY-TR200806005239

PATIENT
  Age: 63 Year
  Sex: Female

DRUGS (2)
  1. HUMULIN 70/30 [Suspect]
     Indication: DIABETES MELLITUS
     Dosage: 16 U/MORNING
     Route: 058
  2. HUMULIN 70/30 [Suspect]
     Dosage: 25 IU, EACH EVENING
     Route: 058

REACTIONS (1)
  - RENAL FAILURE [None]
